FAERS Safety Report 4769215-7 (Version None)
Quarter: 2005Q3

REPORT INFORMATION
  Report Type: 
  Country: None (occurrence: None)
  Receive Date: 20050915
  Receipt Date: 20041110
  Transmission Date: 20060218
  Serious: No
  Sender: FDA-Public Use
  Company Number: US-GLAXOSMITHKLINE-A0533367A

PATIENT
  Age: 25 Year
  Sex: Female

DRUGS (2)
  1. ABREVA [Suspect]
     Dates: start: 20041105, end: 20041108
  2. WELLBUTRIN [Concomitant]

REACTIONS (2)
  - RASH GENERALISED [None]
  - URTICARIA [None]
